FAERS Safety Report 6844531-3 (Version None)
Quarter: 2010Q3

REPORT INFORMATION
  Report Type: 
  Country: None (occurrence: None)
  Receive Date: 20100715
  Receipt Date: 20100701
  Transmission Date: 20110219
  Serious: Yes (Other)
  Sender: FDA-Public Use
  Company Number: PHHY2010DE25404

PATIENT
  Sex: Female
  Weight: 63 kg

DRUGS (5)
  1. DIOVAN [Suspect]
     Indication: HYPERTENSION
     Dosage: 80 MG, (2-0-2 DAILY)
     Route: 048
     Dates: start: 20090901
  2. DIOVAN [Suspect]
     Dosage: 160 MG (1-0-1 DAILY)
     Route: 048
     Dates: start: 20091126, end: 20091209
  3. DIOVAN [Suspect]
     Dosage: 80 MG, (2-0-2 DAILY)
     Route: 048
  4. RASILEZ HCT [Suspect]
     Dosage: 1 DF, QD
     Route: 048
     Dates: start: 20090901
  5. NIFEDIPINE [Suspect]
     Indication: HYPERTENSION
     Dosage: 10 MG (2-0-2 DAILY)
     Route: 048
     Dates: start: 20090901

REACTIONS (7)
  - ANAPHYLACTIC SHOCK [None]
  - CHILLS [None]
  - EYE SWELLING [None]
  - FEAR OF DEATH [None]
  - HEADACHE [None]
  - LIP SWELLING [None]
  - PRESYNCOPE [None]
